FAERS Safety Report 5075076-1 (Version None)
Quarter: 2006Q3

REPORT INFORMATION
  Report Type: 
  Country: None (occurrence: None)
  Receive Date: 20060714
  Receipt Date: 20060509
  Transmission Date: 20061208
  Serious: No
  Sender: FDA-Public Use
  Company Number: 2006SP001998

PATIENT
  Age: 89 Year
  Sex: Male
  Weight: 79.3795 kg

DRUGS (8)
  1. LUNESTA [Suspect]
     Indication: INSOMNIA
     Dosage: 2 MG;HS;ORAL
     Route: 048
     Dates: start: 20051201
  2. TYLENOL (CAPLET) [Concomitant]
  3. PREDNISONE TAB [Concomitant]
  4. CARDIAC THERAPY [Concomitant]
  5. ATORVASTATIN CALCIUM [Concomitant]
  6. NEXIUM [Concomitant]
  7. CENTRUM SILVER [Concomitant]
  8. MELATONIN [Concomitant]

REACTIONS (2)
  - DRUG INEFFECTIVE [None]
  - INITIAL INSOMNIA [None]
